FAERS Safety Report 9655066 (Version 1)
Quarter: 2013Q4

REPORT INFORMATION
  Report Type: Spontaneous
  Country: US (occurrence: US)
  Receive Date: 20131029
  Receipt Date: 20131029
  Transmission Date: 20140711
  Serious: No
  Sender: FDA-Public Use
  Company Number: US-PURDUE-USA-2012-0093550

PATIENT
  Age: 55 Year
  Sex: Male

DRUGS (2)
  1. OXYCONTIN (NDA 22-272) [Suspect]
     Indication: PAIN
     Dosage: 40 MG, BID (8AM AND 5PM)
     Route: 048
     Dates: start: 201205
  2. PERCOCET                           /00867901/ [Concomitant]
     Indication: BREAKTHROUGH PAIN
     Dosage: 10MG, DAILY (MIDNIGHT)
     Route: 048

REACTIONS (1)
  - Drug effect decreased [Not Recovered/Not Resolved]
